FAERS Safety Report 8571834-7 (Version None)
Quarter: 2012Q3

REPORT INFORMATION
  Report Type: 
  Country: None (occurrence: None)
  Receive Date: 20120806
  Receipt Date: 20120730
  Transmission Date: 20120928
  Serious: Yes (Other)
  Sender: FDA-Public Use
  Company Number: GR-AMGEN-GRCSP2012046914

PATIENT
  Age: 75 Year
  Sex: Female

DRUGS (3)
  1. SINGULAIR [Concomitant]
  2. ANTIHYPERTENSIVES [Concomitant]
  3. PROLIA [Suspect]
     Indication: OSTEOPOROSIS
     Dosage: 60 MG, Q6MO
     Dates: start: 20120701

REACTIONS (1)
  - PAIN [None]
